FAERS Safety Report 19723346 (Version 1)
Quarter: 2021Q3

REPORT INFORMATION
  Report Type: Spontaneous
  Country: US (occurrence: US)
  Receive Date: 20210820
  Receipt Date: 20210820
  Transmission Date: 20211014
  Serious: Yes (Other)
  Sender: FDA-Public Use
  Company Number: US-BEH-2021134964

PATIENT
  Sex: Male

DRUGS (2)
  1. ALBUMIN HUMAN (INN) [Suspect]
     Active Substance: ALBUMIN HUMAN
     Indication: HEPATORENAL SYNDROME
  2. ALBUMIN HUMAN (INN) [Suspect]
     Active Substance: ALBUMIN HUMAN
     Indication: FLUID REPLACEMENT
     Dosage: UNK, QD
     Route: 042

REACTIONS (4)
  - Drug ineffective [Unknown]
  - Oedema peripheral [Recovered/Resolved]
  - Fluid overload [Recovered/Resolved]
  - Pulmonary oedema [Recovered/Resolved]
